FAERS Safety Report 10094172 (Version 2)
Quarter: 2014Q2

REPORT INFORMATION
  Report Type: Spontaneous
  Country: ZA (occurrence: ZA)
  Receive Date: 20140422
  Receipt Date: 20140501
  Transmission Date: 20141212
  Serious: Yes (Death, Hospitalization, Other)
  Sender: FDA-Public Use
  Company Number: ZA-009507513-1404ZAF011162

PATIENT
  Sex: 0

DRUGS (2)
  1. CANCIDAS 50MG [Suspect]
     Indication: ANTIFUNGAL TREATMENT
     Dosage: UNK
  2. VFEND [Suspect]
     Indication: ANTIFUNGAL TREATMENT
     Dosage: UNK

REACTIONS (1)
  - Acute myeloid leukaemia [Fatal]
